FAERS Safety Report 6566883-4 (Version None)
Quarter: 2010Q1

REPORT INFORMATION
  Report Type: 
  Country: None (occurrence: None)
  Receive Date: 20100202
  Receipt Date: 20100127
  Transmission Date: 20100710
  Serious: Yes (Hospitalization)
  Sender: FDA-Public Use
  Company Number: B0630478A

PATIENT
  Age: 23 Year
  Sex: Female

DRUGS (6)
  1. LAMICTAL [Suspect]
     Indication: EPILEPTIC PSYCHOSIS
     Dosage: 200MG PER DAY
     Route: 065
  2. IMOVANE [Suspect]
     Indication: DRUG USE FOR UNKNOWN INDICATION
     Route: 065
  3. APODORM [Suspect]
     Indication: DRUG USE FOR UNKNOWN INDICATION
     Route: 065
  4. RIVOTRIL [Suspect]
     Indication: DRUG USE FOR UNKNOWN INDICATION
     Dosage: 2MG PER DAY
     Route: 065
  5. ABILIFY [Suspect]
     Indication: HALLUCINATION
     Dosage: 25MG PER DAY
     Route: 065
  6. SEROQUEL [Suspect]
     Indication: DRUG USE FOR UNKNOWN INDICATION
     Dosage: 25MG TWICE PER DAY
     Route: 065

REACTIONS (3)
  - MENTAL IMPAIRMENT [None]
  - NAUSEA [None]
  - VOMITING [None]
